FAERS Safety Report 7754123-X (Version None)
Quarter: 2011Q3

REPORT INFORMATION
  Report Type: 
  Country: None (occurrence: None)
  Receive Date: 20110915
  Receipt Date: 20110912
  Transmission Date: 20111222
  Serious: Yes (Other)
  Sender: FDA-Public Use
  Company Number: US-ABBOTT-08P-163-0437160-00

PATIENT
  Sex: Male

DRUGS (2)
  1. HUMIRA [Suspect]
     Indication: MATERNAL EXPOSURE DURING PREGNANCY
     Dosage: TRANSMAMMARY AND
     Route: 064
  2. HUMIRA [Suspect]
     Indication: EXPOSURE DURING BREAST FEEDING

REACTIONS (6)
  - CYANOSIS NEONATAL [None]
  - MATERNAL EXPOSURE DURING PREGNANCY [None]
  - UMBILICAL CORD AROUND NECK [None]
  - NEONATAL HYPOXIA [None]
  - SMALL FOR DATES BABY [None]
  - EXPOSURE DURING BREAST FEEDING [None]
